FAERS Safety Report 5152066-1 (Version None)
Quarter: 2006Q4

REPORT INFORMATION
  Report Type: 
  Country: None (occurrence: None)
  Receive Date: 20061116
  Receipt Date: 20061015
  Transmission Date: 20070319
  Serious: Yes (Hospitalization)
  Sender: FDA-Public Use
  Company Number: HQWYE435502OCT06

PATIENT
  Sex: Male
  Weight: 70 kg

DRUGS (14)
  1. ENBREL [Suspect]
     Indication: RHEUMATOID ARTHRITIS
     Route: 058
     Dates: start: 20051220, end: 20060111
  2. ENBREL [Suspect]
     Route: 058
     Dates: start: 20060123, end: 20060123
  3. ENBREL [Suspect]
     Route: 058
     Dates: start: 20060202
  4. PREDNISOLONE [Concomitant]
     Indication: RHEUMATOID ARTHRITIS
     Dosage: UNKNOWN
     Route: 048
     Dates: start: 20000901
  5. LOXONIN [Concomitant]
     Indication: RHEUMATOID ARTHRITIS
     Route: 048
     Dates: start: 20010205
  6. ZANTAC [Concomitant]
     Indication: GASTRITIS
     Route: 048
  7. BACTRIM [Concomitant]
     Dosage: UNKNOWN
     Route: 048
  8. GLAKAY [Concomitant]
     Indication: OSTEOPOROSIS
     Route: 048
     Dates: start: 20020101
  9. ALFAROL [Concomitant]
     Indication: OSTEOPOROSIS
     Route: 048
     Dates: start: 20020101
  10. ADALAT [Concomitant]
     Indication: HYPERTENSION
     Route: 048
  11. STARLIX [Concomitant]
     Indication: DIABETES MELLITUS
     Dosage: UNKNOWN
     Route: 048
     Dates: start: 20051017
  12. LENDORMIN [Concomitant]
     Dosage: UNKNOWN
     Route: 048
  13. BREDININ [Concomitant]
     Indication: RHEUMATOID ARTHRITIS
     Route: 048
     Dates: start: 20010115
  14. BLOPRESS [Concomitant]
     Indication: HYPERTENSION
     Route: 048

REACTIONS (6)
  - ANOREXIA [None]
  - DIARRHOEA [None]
  - HYPERSENSITIVITY [None]
  - INCONTINENCE [None]
  - LOSS OF CONSCIOUSNESS [None]
  - RASH [None]
